FAERS Safety Report 5216375-X (Version None)
Quarter: 2007Q1

REPORT INFORMATION
  Report Type: 
  Country: None (occurrence: None)
  Receive Date: 20061124
  Receipt Date: 20060724
  Transmission Date: 20070707
  Serious: Yes (Disabling)
  Sender: FDA-Public Use
  Company Number: WAES 0607USA04603

PATIENT
  Age: 80 Year
  Sex: Male

DRUGS (6)
  1. TAB VYTORIN 10-20 MG/ 10-40 MG [Suspect]
     Indication: BLOOD CHOLESTEROL INCREASED
     Dosage: 10-20 MG/DAILY/PO; 10-40 MG/DAILY/UNK
     Route: 048
     Dates: start: 20051001, end: 20060709
  2. TAB VYTORIN 10-20 MG/ 10-40 MG [Suspect]
     Indication: BLOOD CHOLESTEROL INCREASED
     Dosage: 10-20 MG/DAILY/PO; 10-40 MG/DAILY/UNK
     Route: 048
     Dates: start: 20060710, end: 20060725
  3. ALTACE [Concomitant]
  4. HYDROCHLOROTHIAZIDE [Concomitant]
  5. NADOLOL [Concomitant]
  6. VITAMIN B COMPLEX CAP [Concomitant]

REACTIONS (4)
  - BLOOD CHOLESTEROL INCREASED [None]
  - MYOPATHY [None]
  - SPINAL COLUMN STENOSIS [None]
  - VASCULAR STENOSIS [None]
